FAERS Safety Report 13497409 (Version 1)
Quarter: 2017Q2

REPORT INFORMATION
  Report Type: Spontaneous
  Country: US (occurrence: US)
  Receive Date: 20170428
  Receipt Date: 20170428
  Transmission Date: 20170830
  Serious: Yes (Hospitalization)
  Sender: FDA-Public Use
  Company Number: US-BAYER-2017-074876

PATIENT
  Sex: Female

DRUGS (2)
  1. AVELOX [Suspect]
     Active Substance: MOXIFLOXACIN HYDROCHLORIDE
     Indication: PNEUMONIA
     Dosage: UNK
     Route: 048
  2. AVELOX [Suspect]
     Active Substance: MOXIFLOXACIN HYDROCHLORIDE
     Indication: PNEUMONIA
     Dosage: UNK
     Route: 042

REACTIONS (8)
  - Eye pain [None]
  - Bradycardia [Recovered/Resolved]
  - Intraocular pressure increased [Recovered/Resolved]
  - Vision blurred [None]
  - Mydriasis [None]
  - Photophobia [None]
  - Eye inflammation [None]
  - Blood pressure increased [Recovered/Resolved]
